FAERS Safety Report 10379655 (Version 1)
Quarter: 2014Q3

REPORT INFORMATION
  Report Type: Spontaneous
  Country: GB (occurrence: None)
  Receive Date: 20140808
  Receipt Date: 20140808
  Transmission Date: 20150326
  Serious: Yes (Other)
  Sender: FDA-Public Use
  Company Number: 2440535

PATIENT
  Age: 33 Year
  Sex: Male

DRUGS (3)
  1. DEFEROXAMINE MESILATE [Suspect]
     Active Substance: DEFEROXAMINE MESYLATE
     Indication: PRODUCT USED FOR UNKNOWN INDICATION
  2. SODIUM CHLORIDE. [Suspect]
     Active Substance: SODIUM CHLORIDE
     Indication: MEDICATION DILUTION
     Dosage: 48 ML MILLILITRE(S), INTRACAVERNOUS
  3. WATER FOR INJECTION [Suspect]
     Active Substance: WATER
     Indication: MEDICATION DILUTION
     Route: 042

REACTIONS (5)
  - Injection site pain [None]
  - Injection site bruising [None]
  - Injection site vesicles [None]
  - Injection site erythema [None]
  - Gastric infection [None]
